FAERS Safety Report 7689039-0 (Version None)
Quarter: 2011Q3

REPORT INFORMATION
  Report Type: 
  Country: None (occurrence: None)
  Receive Date: 20110817
  Receipt Date: 20110808
  Transmission Date: 20111222
  Serious: Yes (Death)
  Sender: FDA-Public Use
  Company Number: US-BRISTOL-MYERS SQUIBB COMPANY-61961

PATIENT
  Age: 21 Year
  Sex: Female

DRUGS (1)
  1. BICNU [Suspect]
     Indication: GLIOMA
     Route: 050

REACTIONS (3)
  - PULMONARY VENO-OCCLUSIVE DISEASE [None]
  - DYSPNOEA [None]
  - COUGH [None]
